FAERS Safety Report 4818059-6 (Version None)
Quarter: 2005Q4

REPORT INFORMATION
  Report Type: 
  Country: None (occurrence: None)
  Receive Date: 20051102
  Receipt Date: 20050414
  Transmission Date: 20060501
  Serious: Yes (Hospitalization, Disabling)
  Sender: FDA-Public Use
  Company Number: US-MERCK-0504USA02961

PATIENT
  Age: 56 Year
  Sex: Female
  Weight: 55 kg

DRUGS (5)
  1. VIOXX [Suspect]
     Indication: RHEUMATOID ARTHRITIS
     Route: 048
     Dates: start: 20010511, end: 20041001
  2. PREDNISONE [Concomitant]
     Route: 065
  3. IMURAN [Concomitant]
     Route: 065
  4. ESTROGENS (UNSPECIFIED) [Concomitant]
     Route: 065
     Dates: start: 19860101, end: 20010101
  5. REMICADE [Concomitant]
     Route: 041

REACTIONS (1)
  - CEREBROVASCULAR ACCIDENT [None]
